FAERS Safety Report 20113178 (Version 11)
Quarter: 2022Q4

REPORT INFORMATION
  Report Type: Report from Study
  Country: US (occurrence: US)
  Receive Date: 20211125
  Receipt Date: 20221128
  Transmission Date: 20230112
  Serious: Yes (Hospitalization, Other)
  Sender: FDA-Public Use
  Company Number: US-TAKEDA-2021TUS058418

PATIENT
  Age: 70 Year
  Sex: Female
  Weight: 69.841 kg

DRUGS (49)
  1. HUMAN IMMUNOGLOBULIN G [Suspect]
     Active Substance: HUMAN IMMUNOGLOBULIN G
     Indication: Polyneuropathy
     Dosage: 22.5 GRAM
     Route: 042
     Dates: start: 20210910
  2. HUMAN IMMUNOGLOBULIN G [Suspect]
     Active Substance: HUMAN IMMUNOGLOBULIN G
     Dosage: 330 MILLIGRAM, QD
     Route: 042
     Dates: start: 20210910
  3. HUMAN IMMUNOGLOBULIN G [Suspect]
     Active Substance: HUMAN IMMUNOGLOBULIN G
     Dosage: 330 MILLIGRAM/KILOGRAM
     Route: 042
     Dates: start: 20210910
  4. HUMAN IMMUNOGLOBULIN G [Suspect]
     Active Substance: HUMAN IMMUNOGLOBULIN G
     Dosage: 500 MILLIGRAM/KILOGRAM, Q2WEEKS
     Route: 042
  5. HUMAN IMMUNOGLOBULIN G [Suspect]
     Active Substance: HUMAN IMMUNOGLOBULIN G
     Dosage: 750 MILLIGRAM/KILOGRAM, Q3WEEKS
     Route: 042
  6. HUMAN IMMUNOGLOBULIN G [Suspect]
     Active Substance: HUMAN IMMUNOGLOBULIN G
     Dosage: 1000 MILLIGRAM/KILOGRAM, Q4WEEKS
     Route: 042
  7. HUMAN IMMUNOGLOBULIN G [Suspect]
     Active Substance: HUMAN IMMUNOGLOBULIN G
     Dosage: 1000 MILLIGRAM/KILOGRAM, Q4WEEKS
     Route: 042
     Dates: start: 20210910
  8. HUMAN IMMUNOGLOBULIN G [Suspect]
     Active Substance: HUMAN IMMUNOGLOBULIN G
     Dosage: 100 GRAM, Q4WEEKS
     Route: 042
     Dates: start: 20210910
  9. SOLU-MEDROL [Suspect]
     Active Substance: METHYLPREDNISOLONE SODIUM SUCCINATE
     Indication: Product used for unknown indication
     Dosage: UNK
     Route: 065
  10. DIPHENHYDRAMINE [Concomitant]
     Active Substance: DIPHENHYDRAMINE
  11. DIPHENHYDRAMINE HYDROCHLORIDE [Concomitant]
     Active Substance: DIPHENHYDRAMINE HYDROCHLORIDE
     Route: 065
  12. HYDROXYZINE HYDROCHLORIDE [Concomitant]
     Active Substance: HYDROXYZINE HYDROCHLORIDE
  13. TRULANCE [Concomitant]
     Active Substance: PLECANATIDE
  14. ACETAMINOPHEN [Concomitant]
     Active Substance: ACETAMINOPHEN
  15. CETIRIZINE HYDROCHLORIDE [Concomitant]
     Active Substance: CETIRIZINE HYDROCHLORIDE
  16. LIDOCAINE [Concomitant]
     Active Substance: LIDOCAINE
  17. EPINEPHRINE [Concomitant]
     Active Substance: EPINEPHRINE
  18. METHYLPREDNISOLONE [Concomitant]
     Active Substance: METHYLPREDNISOLONE
  19. SODIUM CHLORIDE [Concomitant]
     Active Substance: SODIUM CHLORIDE
  20. JANUVIA [Concomitant]
     Active Substance: SITAGLIPTIN PHOSPHATE
  21. ATORVASTATIN CALCIUM [Concomitant]
     Active Substance: ATORVASTATIN CALCIUM
  22. BACLOFEN [Concomitant]
     Active Substance: BACLOFEN
  23. GABAPENTIN [Concomitant]
     Active Substance: GABAPENTIN
  24. PROPRANOLOL HYDROCHLORIDE [Concomitant]
     Active Substance: PROPRANOLOL HYDROCHLORIDE
  25. MYRBETRIQ [Concomitant]
     Active Substance: MIRABEGRON
  26. DEXTROAMPHETAMINE [Concomitant]
     Active Substance: DEXTROAMPHETAMINE
  27. AMPHETAMINE [Concomitant]
     Active Substance: AMPHETAMINE
  28. FLUTICASONE PROPIONATE [Concomitant]
     Active Substance: FLUTICASONE PROPIONATE
  29. METFORMIN HYDROCHLORIDE [Concomitant]
     Active Substance: METFORMIN HYDROCHLORIDE
  30. VITAMIN D [Concomitant]
     Active Substance: VITAMIN D NOS
  31. ESTRADIOL [Concomitant]
     Active Substance: ESTRADIOL
  32. ELMIRON [Concomitant]
     Active Substance: PENTOSAN POLYSULFATE SODIUM
  33. OMEPRAZOLE [Concomitant]
     Active Substance: OMEPRAZOLE
  34. DESIPRAMINE HYDROCHLORIDE [Concomitant]
     Active Substance: DESIPRAMINE HYDROCHLORIDE
  35. LASIX [Concomitant]
     Active Substance: FUROSEMIDE
  36. TERBINAFINE HYDROCHLORIDE [Concomitant]
     Active Substance: TERBINAFINE HYDROCHLORIDE
  37. VITAMIN C [Concomitant]
     Active Substance: ASCORBIC ACID
  38. FLUAD QUADRIVALENT 2020/2021 [Concomitant]
     Active Substance: INFLUENZA A VIRUS A/HONG KONG/2671/2019 IVR-208 (H3N2) ANTIGEN (FORMALDEHYDE INACTIVATED)\INFLUENZA
  39. SODIUM CHLORIDE [Concomitant]
     Active Substance: SODIUM CHLORIDE
  40. HYDROCODONE [Concomitant]
     Active Substance: HYDROCODONE
  41. PROMETHAZINE HYDROCHLORIDE [Concomitant]
     Active Substance: PROMETHAZINE HYDROCHLORIDE
  42. CELEBREX [Concomitant]
     Active Substance: CELECOXIB
  43. KETOROLAC [Concomitant]
     Active Substance: KETOROLAC TROMETHAMINE
  44. TROMETHAMINE [Concomitant]
     Active Substance: TROMETHAMINE
  45. GAMMAGARD [Concomitant]
     Active Substance: HUMAN IMMUNOGLOBULIN G
  46. PHENOBARBITAL [Concomitant]
     Active Substance: PHENOBARBITAL
     Dosage: 100 MILLIGRAM
  47. BACTRIM [Concomitant]
     Active Substance: SULFAMETHOXAZOLE\TRIMETHOPRIM
  48. SOYBEAN OIL EMULS [Concomitant]
  49. CORN OIL [Concomitant]
     Active Substance: CORN OIL

REACTIONS (18)
  - Rib fracture [Unknown]
  - Fall [Unknown]
  - Renal impairment [Unknown]
  - Throat irritation [Recovering/Resolving]
  - Constipation [Recovering/Resolving]
  - Dysuria [Recovered/Resolved]
  - Cystitis [Unknown]
  - Therapeutic reaction time decreased [Unknown]
  - Foot deformity [Unknown]
  - Procedural pain [Not Recovered/Not Resolved]
  - Foot operation [Unknown]
  - Feeling hot [Unknown]
  - Infusion site pain [Recovering/Resolving]
  - Blood pressure increased [Unknown]
  - Abdominal pain upper [Recovered/Resolved]
  - Headache [Unknown]
  - Dizziness [Unknown]
  - Tooth disorder [Unknown]

NARRATIVE: CASE EVENT DATE: 20220701
